FAERS Safety Report 12187539 (Version 1)
Quarter: 2016Q1

REPORT INFORMATION
  Report Type: Spontaneous
  Country: PE (occurrence: PE)
  Receive Date: 20160317
  Receipt Date: 20160317
  Transmission Date: 20160526
  Serious: Yes (Hospitalization)
  Sender: FDA-Public Use
  Company Number: PE-PFIZER INC-2016152507

PATIENT
  Age: 70 Year
  Sex: Female

DRUGS (1)
  1. LYRICA [Suspect]
     Active Substance: PREGABALIN
     Dosage: 75 MG, UNK

REACTIONS (6)
  - Pain [Unknown]
  - Somnambulism [Unknown]
  - Hypoaesthesia [Unknown]
  - Multiple sclerosis [Unknown]
  - Neuropathy peripheral [Unknown]
  - Drug intolerance [Unknown]
